FAERS Safety Report 9179831 (Version 1)
Quarter: 2012Q4

REPORT INFORMATION
  Report Type: Report from Study
  Country: DK (occurrence: DK)
  Receive Date: 20121029
  Receipt Date: 20121029
  Transmission Date: 20130627
  Serious: Yes (Hospitalization)
  Sender: FDA-Public Use
  Company Number: DK-BAXTER-2012BAX021024

PATIENT
  Age: 74 None
  Sex: Male

DRUGS (10)
  1. SENDOXAN [Suspect]
     Indication: CHRONIC LYMPHOCYTIC LEUKEMIA
     Route: 042
     Dates: start: 20070131
  2. SENDOXAN [Suspect]
     Route: 042
     Dates: start: 20070524
  3. RITUXIMAB [Suspect]
     Indication: CHRONIC LYMPHOCYTIC LEUKEMIA
     Route: 042
     Dates: start: 20070130
  4. RITUXIMAB [Suspect]
     Route: 042
     Dates: start: 20070522
  5. FLUDARABINE [Suspect]
     Indication: CHRONIC LYMPHOCYTIC LEUKEMIA
     Route: 042
     Dates: start: 20070131
  6. FLUDARABINE [Suspect]
     Route: 042
     Dates: start: 20070524
  7. METOPROLOL [Concomitant]
     Indication: ATRIAL FIBRILLATION
     Route: 065
     Dates: start: 1993
  8. WARFARIN [Concomitant]
     Indication: DRUG USE FOR UNKNOWN INDICATION
     Route: 065
     Dates: start: 1993
  9. SIMVASTATIN [Concomitant]
     Indication: DRUG USE FOR UNKNOWN INDICATION
     Route: 065
     Dates: start: 2003
  10. PREDNISOLONE [Concomitant]
     Indication: DRUG USE FOR UNKNOWN INDICATION
     Route: 065
     Dates: start: 2007

REACTIONS (5)
  - Sepsis [Recovered/Resolved]
  - Atrial fibrillation [Unknown]
  - Leukopenia [Unknown]
  - Oral candidiasis [Unknown]
  - Oral herpes [Unknown]
